FAERS Safety Report 13210875 (Version 1)
Quarter: 2017Q1

REPORT INFORMATION
  Report Type: Spontaneous
  Country: US (occurrence: US)
  Receive Date: 20170209
  Receipt Date: 20170209
  Transmission Date: 20170428
  Serious: Yes (Disabling)
  Sender: FDA-Public Use
  Company Number: None

PATIENT
  Age: 42 Year
  Sex: Female
  Weight: 112.5 kg

DRUGS (1)
  1. NITROFURANTOIN MONO [Suspect]
     Active Substance: NITROFURANTOIN
     Indication: URINARY TRACT INFECTION
     Dosage: ?          QUANTITY:1 TABLET(S);?
     Route: 048
     Dates: start: 20161122, end: 20161202

REACTIONS (2)
  - Hypersensitivity vasculitis [None]
  - Stevens-Johnson syndrome [None]

NARRATIVE: CASE EVENT DATE: 20161129
